FAERS Safety Report 16728675 (Version 3)
Quarter: 2019Q3

REPORT INFORMATION
  Report Type: Report from Study
  Country: None (occurrence: TR)
  Receive Date: 20190822
  Receipt Date: 20190926
  Transmission Date: 20191005
  Serious: Yes (Other)
  Sender: FDA-Public Use
  Company Number: TR-ABBVIE-19K-161-2896417-00

PATIENT
  Sex: Male
  Weight: 70 kg

DRUGS (7)
  1. FERROSANOL [Concomitant]
     Active Substance: FERROUS GLUCONATE
     Indication: VITAMIN SUPPLEMENTATION
     Route: 048
     Dates: start: 2018
  2. MOTILIUM [Concomitant]
     Active Substance: DOMPERIDONE
     Indication: PARKINSON^S DISEASE
     Route: 048
     Dates: start: 2018
  3. BEVITAB [Concomitant]
     Indication: VITAMIN SUPPLEMENTATION
     Route: 048
     Dates: start: 2018
  4. JANUMET [Concomitant]
     Active Substance: METFORMIN HYDROCHLORIDE\SITAGLIPTIN PHOSPHATE
     Indication: DIABETES MELLITUS
     Route: 048
     Dates: start: 2015
  5. PK-MERZ [Concomitant]
     Active Substance: AMANTADINE
     Indication: PARKINSON^S DISEASE
     Route: 048
     Dates: start: 2016
  6. DUODOPA [Suspect]
     Active Substance: CARBIDOPA\LEVODOPA
     Indication: PARKINSON^S DISEASE
     Dosage: MORNING DOSE (ML): 5.50 ?CONTINUING DOSE (ML): 3.60 ?EXTRA DOSE (ML): 1.50
     Route: 050
     Dates: start: 20181127
  7. CO-IRDA [Concomitant]
     Active Substance: HYDROCHLOROTHIAZIDE\IRBESARTAN
     Indication: HYPERTENSION
     Route: 048
     Dates: start: 2014

REACTIONS (1)
  - Extranodal marginal zone B-cell lymphoma (MALT type) [Not Recovered/Not Resolved]
